FAERS Safety Report 6670735-9 (Version None)
Quarter: 2010Q2

REPORT INFORMATION
  Report Type: 
  Country: None (occurrence: None)
  Receive Date: 20100407
  Receipt Date: 20100326
  Transmission Date: 20101027
  Serious: Yes (Hospitalization)
  Sender: FDA-Public Use
  Company Number: US-CELGENEUS-163-50794-09120466

PATIENT
  Sex: Male
  Weight: 82.7 kg

DRUGS (10)
  1. VIDAZA [Suspect]
     Dosage: 100MG/M2 =200MG
     Route: 058
     Dates: start: 20090105, end: 20090109
  2. VIDAZA [Suspect]
     Route: 048
     Dates: start: 20090217, end: 20090220
  3. ALLOPURINOL [Concomitant]
     Indication: GOUT
     Route: 048
  4. FOSINOPRIL SODIUM [Concomitant]
     Indication: HYPERTENSION
     Route: 048
  5. METOPROLOL SUCCINATE [Concomitant]
     Indication: HYPERTENSION
     Route: 048
  6. OMEPRAZOLE [Concomitant]
     Route: 048
  7. SERTRALINE HCL [Concomitant]
     Indication: DEPRESSION
     Route: 048
  8. SIMVASTATIN [Concomitant]
     Route: 048
  9. BACTRIM DS [Concomitant]
     Indication: INFECTION
     Dosage: 1 TAB
     Route: 048
     Dates: start: 20090109, end: 20090131
  10. RED BLOOD CELLS [Concomitant]
     Indication: DRUG USE FOR UNKNOWN INDICATION
     Dosage: 2 UNITS
     Route: 051

REACTIONS (1)
  - STAPHYLOCOCCAL INFECTION [None]
